FAERS Safety Report 6051854-7 (Version None)
Quarter: 2009Q1

REPORT INFORMATION
  Report Type: 
  Country: None (occurrence: None)
  Receive Date: 20090126
  Receipt Date: 20090113
  Transmission Date: 20090719
  Serious: Yes (Hospitalization, Other)
  Sender: FDA-Public Use
  Company Number: US-ROCHE-601990

PATIENT
  Sex: Male
  Weight: 63 kg

DRUGS (12)
  1. PEG-INTERFERON ALFA 2A (RO 25-8310) [Suspect]
     Indication: HEPATITIS C
     Dosage: DOSAGE FORM : VIAL. PERMANENTLY DISCONTINUED: 17 NOVEMBER 2008.
     Route: 058
     Dates: start: 20080925, end: 20081117
  2. RIBAVIRIN [Suspect]
     Indication: HEPATITIS C
     Dosage: PERMANENTLY DISCONTINUED: 17 NOVEMBER 2008.
     Route: 048
     Dates: start: 20080925, end: 20081117
  3. NEURONTIN [Concomitant]
     Dates: start: 20060101
  4. PAROXETINE HCL [Concomitant]
     Dates: start: 20060101
  5. ROBAXIN [Concomitant]
     Dates: start: 20060101
  6. ATENOLOL [Concomitant]
     Dates: start: 20070101
  7. NIFEDIPINE [Concomitant]
     Dates: start: 20060101
  8. RANITIDINE [Concomitant]
     Dates: start: 20070101
  9. TRAMADOL HCL [Concomitant]
     Dates: start: 20060101
  10. FOSINOPRIL SODIUM [Concomitant]
     Dates: start: 20070101
  11. ASPIRIN [Concomitant]
     Dates: start: 20070101
  12. HUMULIN 70/30 [Concomitant]
     Dosage: DOSE: 14 UNITS
     Dates: start: 20060101

REACTIONS (3)
  - ANAEMIA [None]
  - PANCYTOPENIA [None]
  - SYNCOPE [None]
